FAERS Safety Report 17436693 (Version 1)
Quarter: 2020Q1

REPORT INFORMATION
  Report Type: Spontaneous
  Country: IT (occurrence: IT)
  Receive Date: 20200219
  Receipt Date: 20200219
  Transmission Date: 20200409
  Serious: Yes (Other)
  Sender: FDA-Public Use
  Company Number: IT-AMGEN-ITASP2020026673

PATIENT

DRUGS (6)
  1. ARANESP [Suspect]
     Active Substance: DARBEPOETIN ALFA
     Indication: REFRACTORY ANAEMIA WITH RINGED SIDEROBLASTS
     Dosage: 300 MICROGRAM
     Route: 058
  2. ARANESP [Suspect]
     Active Substance: DARBEPOETIN ALFA
     Indication: REFRACTORY ANAEMIA WITH AN EXCESS OF BLASTS
  3. ARANESP [Suspect]
     Active Substance: DARBEPOETIN ALFA
     Indication: REFRACTORY CYTOPENIA WITH UNILINEAGE DYSPLASIA
     Dosage: 150 MICROGRAM, QWK
     Route: 058
  4. ARANESP [Suspect]
     Active Substance: DARBEPOETIN ALFA
     Indication: REFRACTORY CYTOPENIA WITH MULTILINEAGE DYSPLASIA
  5. ARANESP [Suspect]
     Active Substance: DARBEPOETIN ALFA
     Indication: REFRACTORY CYTOPENIA WITH MULTILINEAGE DYSPLASIA
  6. RED BLOOD CELLS [Concomitant]
     Active Substance: HUMAN RED BLOOD CELL

REACTIONS (5)
  - Therapy non-responder [Unknown]
  - Injection site pain [Unknown]
  - Quality of life decreased [Unknown]
  - Myelodysplastic syndrome [Unknown]
  - Injection site erythema [Unknown]
